FAERS Safety Report 19621581 (Version 1)
Quarter: 2021Q3

REPORT INFORMATION
  Report Type: Spontaneous
  Country: DE (occurrence: DE)
  Receive Date: 20210728
  Receipt Date: 20210728
  Transmission Date: 20211014
  Serious: Yes (Other)
  Sender: FDA-Public Use
  Company Number: NVSC2021DE163918

PATIENT
  Age: 38 Year
  Sex: Female

DRUGS (5)
  1. CARBOPLATIN. [Suspect]
     Active Substance: CARBOPLATIN
     Indication: MALIGNANT NEOPLASM OF THYMUS
     Dosage: UNK (UNK, CYCLICAL)
     Route: 065
     Dates: start: 201907, end: 201912
  2. SUNITINIB [Suspect]
     Active Substance: SUNITINIB
     Indication: MALIGNANT NEOPLASM OF THYMUS
     Dosage: UNK (UNK)
     Route: 065
     Dates: start: 202005
  3. PACLITAXEL. [Suspect]
     Active Substance: PACLITAXEL
     Indication: MALIGNANT NEOPLASM OF THYMUS
     Dosage: UNK (UNK, CYCLICAL)
     Route: 065
     Dates: start: 201907, end: 201912
  4. PEMBROLIZUMAB. [Suspect]
     Active Substance: PEMBROLIZUMAB
     Indication: MALIGNANT NEOPLASM OF THYMUS
     Dosage: UNK
     Route: 065
     Dates: start: 201907, end: 201912
  5. PEMBROLIZUMAB. [Suspect]
     Active Substance: PEMBROLIZUMAB
     Dosage: UNK
     Route: 065
     Dates: start: 202001, end: 202003

REACTIONS (4)
  - Rash maculo-papular [Unknown]
  - C-kit gene mutation [Unknown]
  - Off label use [Unknown]
  - Malignant neoplasm progression [Unknown]

NARRATIVE: CASE EVENT DATE: 201907
